FAERS Safety Report 21465129 (Version 1)
Quarter: 2022Q4

REPORT INFORMATION
  Report Type: Spontaneous
  Country: US (occurrence: US)
  Receive Date: 20221017
  Receipt Date: 20221017
  Transmission Date: 20230113
  Serious: Yes (Congenital Anomaly)
  Sender: FDA-Public Use
  Company Number: US-NOVOPROD-960854

PATIENT
  Age: 23 Month
  Sex: Female
  Weight: 9.524 kg

DRUGS (1)
  1. SAXENDA [Suspect]
     Active Substance: LIRAGLUTIDE
     Indication: Weight decreased
     Dosage: 3 MG, QD
     Route: 064
     Dates: start: 202001, end: 20200403

REACTIONS (10)
  - Congenital anomaly [Unknown]
  - Jaundice neonatal [Recovered/Resolved]
  - Weight gain poor [Not Recovered/Not Resolved]
  - Food allergy [Not Recovered/Not Resolved]
  - Anaemia [Not Recovered/Not Resolved]
  - Ear infection [Not Recovered/Not Resolved]
  - Irritable bowel syndrome [Unknown]
  - Dermatitis [Not Recovered/Not Resolved]
  - Constipation [Not Recovered/Not Resolved]
  - Foetal exposure during pregnancy [Recovered/Resolved]

NARRATIVE: CASE EVENT DATE: 20200101
